FAERS Safety Report 9014228 (Version 1)
Quarter: 2013Q1

REPORT INFORMATION
  Report Type: Spontaneous
  Country: GB (occurrence: GB)
  Receive Date: 20130115
  Receipt Date: 20130115
  Transmission Date: 20140127
  Serious: Yes (Other)
  Sender: FDA-Public Use
  Company Number: GB-ABBOTT-12P-167-0999950-00

PATIENT
  Age: 45 Year
  Sex: Female
  Weight: 57 kg

DRUGS (1)
  1. HUMIRA [Suspect]
     Indication: RHEUMATOID ARTHRITIS
     Dates: start: 201209

REACTIONS (6)
  - Adverse drug reaction [Recovering/Resolving]
  - Pruritus [Unknown]
  - Rash [Unknown]
  - Malaise [Unknown]
  - Diarrhoea [Unknown]
  - Infection [Unknown]
